FAERS Safety Report 8261069-X (Version None)
Quarter: 2012Q2

REPORT INFORMATION
  Report Type: 
  Country: None (occurrence: None)
  Receive Date: 20120405
  Receipt Date: 20120330
  Transmission Date: 20120825
  Serious: Yes (Death, Hospitalization)
  Sender: FDA-Public Use
  Company Number: PHHO2012US003669

PATIENT
  Sex: Male
  Weight: 106.58 kg

DRUGS (22)
  1. METHYLPHENIDATE HYDROCHLORIDE [Suspect]
     Indication: CARDIOVASCULAR EVENT PROPHYLAXIS
     Dosage: 2 DF, (SYRINGES)
     Route: 058
     Dates: start: 20110902, end: 20110902
  2. LISINOPRIL [Concomitant]
     Indication: HYPERTENSION
     Dosage: 10 MG, BID
     Route: 048
     Dates: start: 20040430
  3. SIMVASTATIN [Concomitant]
     Indication: DYSLIPIDAEMIA
     Dosage: 40 MG, QD
     Route: 048
     Dates: start: 20110919, end: 20110921
  4. ILARIS [Suspect]
     Indication: CARDIOVASCULAR EVENT PROPHYLAXIS
     Dosage: 2 DF, (SYRINGES)
     Route: 058
     Dates: start: 20110902, end: 20110902
  5. PROMETHAZINE [Concomitant]
     Indication: NAUSEA
     Dosage: 25 MG, PRN
     Route: 048
     Dates: start: 20111026, end: 20120202
  6. METHYLPHENIDATE HYDROCHLORIDE [Suspect]
     Indication: CARDIOVASCULAR EVENT PROPHYLAXIS
     Dosage: 2 DF, (SYRINGES)
     Route: 058
     Dates: start: 20110902, end: 20110902
  7. NITROGLYCERIN [Concomitant]
     Indication: CHEST PAIN
     Dosage: 0.4 MG, PRN
     Route: 048
     Dates: start: 20060830, end: 20120202
  8. PERCOCET [Concomitant]
     Indication: COLON CANCER
     Dosage: 5/325 MG PRN
     Route: 048
     Dates: start: 20110921, end: 20120202
  9. TORADOL [Concomitant]
     Indication: COLON CANCER
     Dosage: 30 MG, PRN
     Route: 017
     Dates: start: 20110919, end: 20110922
  10. NIACIN [Concomitant]
     Indication: DYSLIPIDAEMIA
     Dosage: 100 MG, QD
     Route: 048
     Dates: start: 20110919, end: 20110921
  11. PANTOPRAZOLE [Concomitant]
     Dosage: 40 MG, BID
     Route: 048
     Dates: start: 20110920, end: 20110922
  12. ASPIRIN [Concomitant]
     Indication: CORONARY ARTERY DISEASE
     Dosage: 81 MG, QD
     Route: 048
     Dates: start: 20060830
  13. PLAVIX [Concomitant]
     Indication: CORONARY ARTERY DISEASE
     Dosage: 75 MG, QD
     Route: 048
     Dates: start: 20060830
  14. SIMCOR [Concomitant]
     Indication: HYPERLIPIDAEMIA
     Dosage: 100/40 MG, QD
     Route: 048
     Dates: start: 20090519
  15. DOCUSATE SODIUM [Concomitant]
     Indication: COLON CANCER
     Dosage: 100 MG, BID
     Route: 048
     Dates: start: 20110919, end: 20110922
  16. LOVENOX [Concomitant]
     Indication: COLON CANCER
     Dosage: 40 MG, QD
     Route: 058
     Dates: start: 20110920, end: 20110922
  17. PNEUMOVAX 23 [Concomitant]
     Dosage: 0.5 ML, QD
     Route: 058
     Dates: start: 20110922, end: 20110922
  18. FOLFOX [Suspect]
     Indication: COLON CANCER
     Dosage: ONCE A MONTH
     Dates: start: 20111022
  19. CARVEDILOL [Concomitant]
     Indication: HYPERTENSION
     Dosage: 6.25 MG, BID
     Route: 048
     Dates: start: 20060911
  20. VIAGRA [Concomitant]
     Indication: ERECTILE DYSFUNCTION
     Dosage: 100 MG, PRN
     Route: 048
     Dates: start: 20030301, end: 20120202
  21. PANTOPRAZOLE [Concomitant]
     Indication: COLON CANCER
     Dosage: 40 MG, QD
     Route: 042
     Dates: start: 20110919, end: 20110919
  22. MILK OF MAGNESIA TAB [Concomitant]
     Indication: COLON CANCER
     Dosage: 30 ML, QD
     Route: 048
     Dates: start: 20110922, end: 20110922

REACTIONS (8)
  - PNEUMONIA [None]
  - PULMONARY EMBOLISM [None]
  - DIALYSIS [None]
  - NEOPLASM PROGRESSION [None]
  - RENAL FAILURE ACUTE [None]
  - COLON CANCER [None]
  - RESPIRATORY FAILURE [None]
  - CARDIAC FAILURE [None]
